FAERS Safety Report 7214125-9 (Version None)
Quarter: 2010Q4

REPORT INFORMATION
  Report Type: 
  Country: None (occurrence: None)
  Receive Date: 20101126
  Receipt Date: 20091111
  Transmission Date: 20110411
  Serious: Yes (Other)
  Sender: FDA-Public Use
  Company Number: WAES 0907USA02552

PATIENT
  Age: 56 Year
  Sex: Female
  Weight: 58.9676 kg

DRUGS (7)
  1. FOSAMAX [Suspect]
     Indication: OSTEOPOROSIS
     Dosage: 70 MG/WKY/PO
     Route: 048
     Dates: start: 20050616, end: 20070710
  2. FOSAMAX [Suspect]
     Indication: OSTEOPOROSIS
     Dosage: 35 MG/PO
     Route: 048
     Dates: start: 20070818, end: 20070917
  3. ARIMIDEX [Concomitant]
  4. ZYRTEC [Concomitant]
  5. CALCIUM (UNSPECIFIED) [Concomitant]
  6. NAPROXEN [Concomitant]
  7. VITAMIN D (UNSPECIFIED) [Concomitant]

REACTIONS (19)
  - CONSTIPATION [None]
  - ECZEMA [None]
  - EXCORIATION [None]
  - FISTULA [None]
  - FRACTURE [None]
  - GASTROOESOPHAGEAL REFLUX DISEASE [None]
  - HAEMATURIA [None]
  - HEADACHE [None]
  - HYPERTONIC BLADDER [None]
  - IMPAIRED HEALING [None]
  - JOINT RANGE OF MOTION DECREASED [None]
  - MELANOCYTIC NAEVUS [None]
  - ORAL DISORDER [None]
  - ORAL FIBROMA [None]
  - ORAL INFECTION [None]
  - ORAL TORUS [None]
  - OSTEONECROSIS [None]
  - STOMATITIS [None]
  - VULVOVAGINAL DRYNESS [None]
